FAERS Safety Report 10056803 (Version 2)
Quarter: 2014Q2

REPORT INFORMATION
  Report Type: Spontaneous
  Country: JP (occurrence: JP)
  Receive Date: 20140403
  Receipt Date: 20140414
  Transmission Date: 20141212
  Serious: Yes (Hospitalization)
  Sender: FDA-Public Use
  Company Number: PHHY2014JP037340

PATIENT
  Age: 58 Year
  Sex: Female
  Weight: 45 kg

DRUGS (4)
  1. ANASTROZOLE [Suspect]
     Indication: BREAST CANCER
     Dosage: 1 MG
     Route: 048
     Dates: start: 200806, end: 200907
  2. ADRIAMYCIN [Concomitant]
     Indication: CHEMOTHERAPY
     Dosage: 30 MG, ON DAY 1
  3. FLUOROURACIL [Concomitant]
     Indication: CHEMOTHERAPY
     Dosage: 500 MG, ON DAY 8
  4. CYCLOPHOSPHAMIDE [Concomitant]
     Indication: CHEMOTHERAPY
     Dosage: 100 MG, ON DAYS 1 TO 14

REACTIONS (7)
  - Autoimmune hepatitis [Recovering/Resolving]
  - Malaise [Recovering/Resolving]
  - Transaminases increased [Recovering/Resolving]
  - Blood immunoglobulin G increased [Recovering/Resolving]
  - Hepatomegaly [Recovering/Resolving]
  - Prothrombin time prolonged [Unknown]
  - Condition aggravated [Recovering/Resolving]
